FAERS Safety Report 11201720 (Version 1)
Quarter: 2015Q2

REPORT INFORMATION
  Report Type: Spontaneous
  Country: US (occurrence: US)
  Receive Date: 20150619
  Receipt Date: 20150619
  Transmission Date: 20150821
  Serious: Yes (Hospitalization, Other)
  Sender: FDA-Public Use
  Company Number: US-JNJFOC-20150607979

PATIENT
  Age: 82 Year
  Sex: Female
  Weight: 70.31 kg

DRUGS (1)
  1. XARELTO [Suspect]
     Active Substance: RIVAROXABAN
     Indication: THROMBOSIS
     Route: 048
     Dates: start: 201503, end: 2015

REACTIONS (5)
  - Cystitis [Not Recovered/Not Resolved]
  - Lung infection [Not Recovered/Not Resolved]
  - Urinary tract infection [Unknown]
  - Leukopenia [Unknown]
  - Sepsis [Unknown]

NARRATIVE: CASE EVENT DATE: 201503
